FAERS Safety Report 7117280-4 (Version None)
Quarter: 2010Q4

REPORT INFORMATION
  Report Type: 
  Country: None (occurrence: None)
  Receive Date: 20101122
  Receipt Date: 20101118
  Transmission Date: 20110411
  Serious: Yes (Other)
  Sender: FDA-Public Use
  Company Number: JP-PFIZER INC-2009192887

PATIENT
  Age: 83 Year
  Sex: Male
  Weight: 56.8 kg

DRUGS (4)
  1. SUNITINIB MALATE [Suspect]
     Indication: RENAL CELL CARCINOMA
     Dosage: 50 MG, 1X/DAY
     Route: 048
     Dates: start: 20090119, end: 20090128
  2. SUNITINIB MALATE [Suspect]
     Dosage: 37.5 MG, 1X/DAY
     Route: 048
     Dates: start: 20090212, end: 20090405
  3. THYRADIN S [Concomitant]
     Route: 048
     Dates: start: 20090119
  4. NOVORAPID [Concomitant]
     Route: 058

REACTIONS (4)
  - EJECTION FRACTION DECREASED [None]
  - HYPERTENSION [None]
  - HYPOTHYROIDISM [None]
  - PULMONARY OEDEMA [None]
